FAERS Safety Report 17137523 (Version 1)
Quarter: 2019Q4

REPORT INFORMATION
  Report Type: Spontaneous
  Country: ES (occurrence: ES)
  Receive Date: 20191210
  Receipt Date: 20191210
  Transmission Date: 20200122
  Serious: Yes (Life-Threatening, Hospitalization)
  Sender: FDA-Public Use
  Company Number: ES-SUN PHARMACEUTICAL INDUSTRIES LTD-2019RR-230397

PATIENT
  Age: 48 Year
  Sex: Male

DRUGS (2)
  1. XELOX [Interacting]
     Active Substance: CAPECITABINE\OXALIPLATIN
     Indication: COLON CANCER STAGE II
     Dosage: ()
     Route: 065
     Dates: start: 20190917, end: 20191015
  2. OXALIPLATIN. [Suspect]
     Active Substance: OXALIPLATIN
     Indication: COLON CANCER STAGE II
     Dosage: ()
     Route: 042
     Dates: start: 20190917, end: 20191008

REACTIONS (1)
  - Peripheral ischaemia [Recovered/Resolved]

NARRATIVE: CASE EVENT DATE: 20191015
